FAERS Safety Report 20430134 (Version 1)
Quarter: 2022Q1

REPORT INFORMATION
  Report Type: Report from Study
  Country: FR (occurrence: FR)
  Receive Date: 20220204
  Receipt Date: 20220204
  Transmission Date: 20220423
  Serious: Yes (Hospitalization, Other)
  Sender: FDA-Public Use
  Company Number: FR-SERVIER-S20003596

PATIENT

DRUGS (21)
  1. PEGASPARGASE [Suspect]
     Active Substance: PEGASPARGASE
     Indication: Acute lymphocytic leukaemia
     Dosage: 2475 IU, D12, D26
     Route: 042
     Dates: start: 20191207
  2. TN UNSPECIFIED [Concomitant]
     Indication: Acute lymphocytic leukaemia
     Dosage: 60 MG, D8 TO D28
     Route: 048
     Dates: start: 20191203, end: 20191213
  3. TN UNSPECIFIED [Concomitant]
     Indication: Acute lymphocytic leukaemia
     Dosage: 15 MG, D13 AND D24
     Route: 037
     Dates: start: 20191208, end: 20191219
  4. TN UNSPECIFIED [Concomitant]
     Indication: Acute lymphocytic leukaemia
     Dosage: 1.5 MG, D8, D15, D22 AND D29
     Route: 042
     Dates: start: 20191203, end: 20191224
  5. TN UNSPECIFIED [Concomitant]
     Indication: Acute lymphocytic leukaemia
     Dosage: 15 MG, D13 AND D24
     Route: 037
     Dates: start: 20191208, end: 20191219
  6. TN UNSPECIFIED [Concomitant]
     Indication: Acute lymphocytic leukaemia
     Dosage: 30 MG, D8, D15, D22 AND D29
     Route: 042
     Dates: start: 20191203, end: 20191224
  7. TN UNSPECIFIED [Concomitant]
     Indication: Acute lymphocytic leukaemia
     Dosage: 30 MG, D13 AND D24
     Route: 037
     Dates: start: 20191208, end: 20191219
  8. TN UNSPECIFIED [Concomitant]
     Indication: Prophylaxis
     Dosage: 20 MG, QD
     Route: 048
     Dates: start: 20191205
  9. BACTRIM [Concomitant]
     Active Substance: SULFAMETHOXAZOLE\TRIMETHOPRIM
     Indication: Prophylaxis
     Dosage: 85 MG, QD
     Route: 048
     Dates: start: 20191127
  10. FASTURTEC [Concomitant]
     Active Substance: RASBURICASE
     Indication: Prophylaxis
     Dosage: 6 MG, QD
     Route: 042
     Dates: start: 20191121
  11. PIPERACILLIN SODIUM\TAZOBACTAM SODIUM [Concomitant]
     Active Substance: PIPERACILLIN SODIUM\TAZOBACTAM SODIUM
     Indication: Prophylaxis
     Dosage: 8400 MG, QD
     Route: 042
     Dates: start: 20191121
  12. DAFALGAN [Concomitant]
     Active Substance: ACETAMINOPHEN
     Indication: Pyrexia
     Dosage: 1680 MG, QD
     Route: 042
     Dates: start: 20191120
  13. DAFALGAN [Concomitant]
     Active Substance: ACETAMINOPHEN
     Indication: Pain
  14. ONDANSETRON [Concomitant]
     Active Substance: ONDANSETRON
     Indication: Prophylaxis
     Dosage: 16 MG, QD
     Route: 042
     Dates: start: 20191202
  15. NUBAIN [Concomitant]
     Active Substance: NALBUPHINE HYDROCHLORIDE
     Indication: Prophylaxis
     Dosage: 30 MG, PRN
     Route: 042
     Dates: start: 20191204
  16. ALIZAPRIDE HYDROCHLORIDE [Concomitant]
     Active Substance: ALIZAPRIDE HYDROCHLORIDE
     Indication: Prophylaxis
     Dosage: 84 MG, QD
     Route: 042
     Dates: start: 20191203
  17. FUROSEMIDE [Concomitant]
     Active Substance: FUROSEMIDE
     Indication: Prophylaxis
     Dosage: 42 MG, PRN
     Route: 042
     Dates: start: 20191120, end: 20191221
  18. STEROGYL [Concomitant]
     Active Substance: ERGOCALCIFEROL
     Indication: Vitamin supplementation
     Dosage: 85 MG
     Route: 048
     Dates: start: 20191126
  19. TN UNSPECIFIED [Concomitant]
     Indication: Mineral supplementation
     Dosage: 1000 MG
     Route: 048
     Dates: start: 20191127
  20. TN UNSPECIFIED [Concomitant]
     Indication: Product used for unknown indication
     Dosage: 8 MG
     Route: 042
     Dates: start: 20191121
  21. TN UNSPECIFIED [Concomitant]
     Indication: Product used for unknown indication
     Dosage: 40 MG
     Route: 042
     Dates: start: 20191122

REACTIONS (3)
  - Hyperglycaemia [Recovering/Resolving]
  - Gamma-glutamyltransferase increased [Not Recovered/Not Resolved]
  - Gastrointestinal haemorrhage [Not Recovered/Not Resolved]

NARRATIVE: CASE EVENT DATE: 20191209
